FAERS Safety Report 4892312-2 (Version None)
Quarter: 2006Q1

REPORT INFORMATION
  Report Type: 
  Country: None (occurrence: None)
  Receive Date: 20060124
  Receipt Date: 20060113
  Transmission Date: 20060701
  Serious: Yes (Hospitalization)
  Sender: FDA-Public Use
  Company Number: 13243

PATIENT
  Age: 22 Year
  Sex: Female

DRUGS (1)
  1. BLEOMYCIN [Suspect]
     Indication: SKIN PAPILLOMA

REACTIONS (1)
  - PERIPHERAL ISCHAEMIA [None]
